FAERS Safety Report 6170335-3 (Version None)
Quarter: 2009Q2

REPORT INFORMATION
  Report Type: 
  Country: None (occurrence: None)
  Receive Date: 20090427
  Receipt Date: 20090427
  Transmission Date: 20091009
  Serious: No
  Sender: FDA-Public Use
  Company Number: None

PATIENT
  Age: 22 Year
  Sex: Male

DRUGS (2)
  1. OXYBUTYNIN, DANBURY [Suspect]
     Indication: HYPERTONIC BLADDER
     Dosage: 2 TABLETS 3 TIMES DAILY
  2. OXYBUTYNIN, DANBURY [Suspect]
     Indication: MUSCLE SPASMS
     Dosage: 2 TABLETS 3 TIMES DAILY

REACTIONS (2)
  - DIZZINESS [None]
  - MUSCULOSKELETAL STIFFNESS [None]
